FAERS Safety Report 4866742-9 (Version None)
Quarter: 2005Q4

REPORT INFORMATION
  Report Type: 
  Country: None (occurrence: None)
  Receive Date: 20051227
  Receipt Date: 20051223
  Transmission Date: 20060501
  Serious: Yes (Death, Hospitalization)
  Sender: FDA-Public Use
  Company Number: US-BRISTOL-MYERS SQUIBB COMPANY-13228895

PATIENT
  Age: 69 Year
  Sex: Female
  Weight: 135 kg

DRUGS (5)
  1. CARBOPLATIN [Suspect]
     Indication: OVARIAN CANCER
     Route: 042
     Dates: start: 20030923
  2. PACLITAXEL [Suspect]
     Indication: OVARIAN CANCER
     Route: 042
     Dates: start: 20030923
  3. LEVAQUIN [Concomitant]
     Dates: end: 20031202
  4. LEXAPRO [Concomitant]
  5. SINGULAIR [Concomitant]

REACTIONS (8)
  - ANAEMIA [None]
  - DEHYDRATION [None]
  - FEBRILE NEUTROPENIA [None]
  - NEUTROPENIA [None]
  - PNEUMONIA [None]
  - RENAL FAILURE ACUTE [None]
  - SEPSIS [None]
  - VOMITING [None]
